FAERS Safety Report 8854192 (Version 1)
Quarter: 2012Q4

REPORT INFORMATION
  Report Type: 
  Country: JP (occurrence: JP)
  Receive Date: 20121022
  Receipt Date: 20121022
  Transmission Date: 20130627
  Serious: Yes (Hospitalization)
  Sender: FDA-Public Use
  Company Number: JP-ELI_LILLY_AND_COMPANY-JP201210003234

PATIENT
  Age: 29 Year
  Sex: Male

DRUGS (10)
  1. STRATTERA [Suspect]
     Indication: ATTENTION DEFICIT/HYPERACTIVITY DISORDER
     Dosage: UNK
     Route: 048
     Dates: start: 20120829, end: 20120904
  2. STRATTERA [Suspect]
     Dosage: UNK
     Route: 048
     Dates: start: 20120905, end: 20120914
  3. STRATTERA [Suspect]
     Dosage: UNK
     Route: 048
     Dates: start: 20120915, end: 20120924
  4. STRATTERA [Suspect]
     Dosage: UNK
     Route: 048
     Dates: start: 20120925, end: 20121001
  5. STRATTERA [Suspect]
     Dosage: UNK
     Route: 048
     Dates: start: 20121002, end: 20121008
  6. CYMBALTA [Concomitant]
     Indication: DEPRESSION
     Dosage: UNK
     Route: 048
     Dates: start: 20120607, end: 20120614
  7. CYMBALTA [Concomitant]
     Dosage: UNK
     Route: 048
     Dates: start: 20120615, end: 20120620
  8. CYMBALTA [Concomitant]
     Dosage: UNK
     Route: 048
     Dates: start: 20120621, end: 20120904
  9. CYMBALTA [Concomitant]
     Dosage: UNK
     Route: 048
     Dates: start: 20120905, end: 20120914
  10. CYMBALTA [Concomitant]
     Dosage: UNK
     Route: 048
     Dates: start: 20120915, end: 20121001

REACTIONS (1)
  - Jaundice [Not Recovered/Not Resolved]
